FAERS Safety Report 6890734-1 (Version None)
Quarter: 2010Q3

REPORT INFORMATION
  Report Type: 
  Country: None (occurrence: None)
  Receive Date: 20100731
  Receipt Date: 20090311
  Transmission Date: 20110219
  Serious: Yes (Other)
  Sender: FDA-Public Use
  Company Number: US-PFIZER INC-2009183034

PATIENT
  Sex: Male
  Weight: 90.703 kg

DRUGS (3)
  1. LIPITOR [Suspect]
     Indication: BLOOD CHOLESTEROL INCREASED
     Dosage: 40 MG, 1X/DAY
  2. ZETIA [Concomitant]
     Dosage: UNK
  3. ANTIDEPRESSANTS [Concomitant]
     Dosage: UNK

REACTIONS (1)
  - DEPRESSION [None]
